FAERS Safety Report 5473609-4 (Version None)
Quarter: 2007Q4

REPORT INFORMATION
  Report Type: 
  Country: None (occurrence: None)
  Receive Date: 20071001
  Receipt Date: 20070919
  Transmission Date: 20080405
  Serious: Yes (Life-Threatening, Hospitalization)
  Sender: FDA-Public Use
  Company Number: JP-PFIZER INC-2005107892

PATIENT
  Sex: Male

DRUGS (2)
  1. SOLU-CORTEF [Suspect]
     Indication: FACIAL PALSY
     Dosage: DAILY DOSE:500MG
     Route: 042
     Dates: start: 20050726, end: 20050726
  2. AMLODIPINE BESYLATE [Concomitant]
     Route: 048

REACTIONS (1)
  - ANAPHYLACTIC REACTION [None]
